FAERS Safety Report 4414399-3 (Version None)
Quarter: 2004Q3

REPORT INFORMATION
  Report Type: 
  Country: None (occurrence: None)
  Receive Date: 20040803
  Receipt Date: 20040303
  Transmission Date: 20050211
  Serious: Yes (Life-Threatening, Hospitalization, Disabling)
  Sender: FDA-Public Use
  Company Number: DE-MERCK-0403DEU00035

PATIENT
  Age: 10 Year
  Sex: Male
  Weight: 48 kg

DRUGS (2)
  1. ALBUTEROL SULFATE [Concomitant]
     Indication: ASTHMA
     Route: 055
     Dates: start: 20040112
  2. SINGULAIR [Suspect]
     Indication: ASTHMA
     Route: 048
     Dates: start: 20040209, end: 20040225

REACTIONS (9)
  - CANDIDIASIS [None]
  - DIABETES MELLITUS INSULIN-DEPENDENT [None]
  - DIABETIC COMA [None]
  - HEADACHE [None]
  - HEART RATE INCREASED [None]
  - KETOACIDOSIS [None]
  - NAUSEA [None]
  - STAPHYLOCOCCAL INFECTION [None]
  - WHITE BLOOD CELL COUNT INCREASED [None]
